FAERS Safety Report 6338034-2 (Version None)
Quarter: 2009Q3

REPORT INFORMATION
  Report Type: 
  Country: None (occurrence: None)
  Receive Date: 20090902
  Receipt Date: 20090828
  Transmission Date: 20100115
  Serious: Yes (Other)
  Sender: FDA-Public Use
  Company Number: US-BAYER-200930886NA

PATIENT
  Age: 31 Year
  Sex: Male

DRUGS (4)
  1. AVELOX [Suspect]
     Indication: SINUSITIS
     Dates: start: 20090824
  2. PROPECIA [Suspect]
     Indication: DRUG USE FOR UNKNOWN INDICATION
     Dates: start: 20090823
  3. ADDERALL 10 [Suspect]
     Indication: DRUG USE FOR UNKNOWN INDICATION
     Dates: start: 20090824
  4. ZITHROMAX [Concomitant]

REACTIONS (7)
  - ANAPHYLACTIC REACTION [None]
  - BLINDNESS [None]
  - BLOOD PRESSURE DECREASED [None]
  - ERYTHEMA [None]
  - PARAESTHESIA ORAL [None]
  - SWELLING FACE [None]
  - SYNCOPE [None]
